FAERS Safety Report 14171469 (Version 1)
Quarter: 2017Q4

REPORT INFORMATION
  Report Type: Spontaneous
  Country: US (occurrence: US)
  Receive Date: 20171108
  Receipt Date: 20171108
  Transmission Date: 20180321
  Serious: Yes (Hospitalization)
  Sender: FDA-Public Use
  Company Number: US-BAYER-2017-214066

PATIENT
  Age: 50 Year
  Sex: Female

DRUGS (1)
  1. GADAVIST [Suspect]
     Active Substance: GADOBUTROL
     Indication: NUCLEAR MAGNETIC RESONANCE IMAGING
     Dosage: 7 ML, ONCE
     Dates: start: 20170309

REACTIONS (4)
  - Urticaria [None]
  - Pruritus generalised [None]
  - Eye swelling [None]
  - Sneezing [None]

NARRATIVE: CASE EVENT DATE: 2017
